FAERS Safety Report 14703528 (Version 9)
Quarter: 2020Q1

REPORT INFORMATION
  Report Type: Spontaneous
  Country: CA (occurrence: CA)
  Receive Date: 20180402
  Receipt Date: 20200128
  Transmission Date: 20200409
  Serious: Yes (Other)
  Sender: FDA-Public Use
  Company Number: CA-ROCHE-2099044

PATIENT
  Sex: Female

DRUGS (15)
  1. XOLAIR [Suspect]
     Active Substance: OMALIZUMAB
     Route: 058
     Dates: start: 20190803
  2. LUCENTIS [Concomitant]
     Active Substance: RANIBIZUMAB
     Indication: PRODUCT USED FOR UNKNOWN INDICATION
     Dosage: UNK (LEFT EYE)
     Route: 065
  3. ARNUITY ELLIPTA [Concomitant]
     Active Substance: FLUTICASONE FUROATE
     Indication: ASTHMA
     Route: 055
     Dates: start: 20170308
  4. BLEXTEN [Concomitant]
     Active Substance: BILASTINE
     Dosage: 1 DF (20 MG), BID
     Route: 065
     Dates: start: 20170210
  5. XOLAIR [Suspect]
     Active Substance: OMALIZUMAB
     Indication: CHRONIC SPONTANEOUS URTICARIA
     Route: 058
     Dates: start: 20180320
  6. XOLAIR [Suspect]
     Active Substance: OMALIZUMAB
     Route: 058
     Dates: start: 20180417
  7. SALBUTAMOL [Concomitant]
     Active Substance: ALBUTEROL
     Indication: ASTHMA
     Route: 055
  8. CELECOXIB. [Concomitant]
     Active Substance: CELECOXIB
     Indication: CHRONIC SPONTANEOUS URTICARIA
     Route: 048
     Dates: start: 20170209
  9. BLEXTEN [Concomitant]
     Active Substance: BILASTINE
     Indication: CHRONIC SPONTANEOUS URTICARIA
     Dosage: 1 DF (40 MG), BID
     Route: 065
     Dates: start: 20170209
  10. BLEXTEN [Concomitant]
     Active Substance: BILASTINE
     Dosage: 2 TABLETS
     Route: 065
     Dates: start: 20190803
  11. XOLAIR [Suspect]
     Active Substance: OMALIZUMAB
     Route: 058
     Dates: start: 20181228
  12. XOLAIR [Suspect]
     Active Substance: OMALIZUMAB
     Route: 058
     Dates: start: 20190125
  13. XOLAIR [Suspect]
     Active Substance: OMALIZUMAB
     Route: 058
     Dates: start: 20190417
  14. BENADRYL [Concomitant]
     Active Substance: DIPHENHYDRAMINE HYDROCHLORIDE
     Indication: CHRONIC SPONTANEOUS URTICARIA
     Route: 048
  15. XOLAIR [Suspect]
     Active Substance: OMALIZUMAB
     Route: 058
     Dates: start: 20181130

REACTIONS (13)
  - Vomiting [Recovering/Resolving]
  - Angioedema [Unknown]
  - Gastroenteritis viral [Recovering/Resolving]
  - Influenza [Unknown]
  - Sensitivity to weather change [Unknown]
  - Dyspnoea [Recovering/Resolving]
  - Injection site swelling [Unknown]
  - Diarrhoea [Recovering/Resolving]
  - Middle insomnia [Unknown]
  - Anaphylactic shock [Recovered/Resolved]
  - Urticaria [Recovered/Resolved]
  - Swelling face [Unknown]
  - Rash [Unknown]

NARRATIVE: CASE EVENT DATE: 20180320
